FAERS Safety Report 15133118 (Version 1)
Quarter: 2018Q3

REPORT INFORMATION
  Report Type: Spontaneous
  Country: ES (occurrence: ES)
  Receive Date: 20180712
  Receipt Date: 20180712
  Transmission Date: 20181010
  Serious: Yes (Hospitalization)
  Sender: FDA-Public Use
  Company Number: ES-TEVA-2018-ES-924351

PATIENT
  Age: 27 Year
  Sex: Male

DRUGS (3)
  1. LEVOFLOXACINO [Suspect]
     Active Substance: LEVOFLOXACIN
     Route: 048
     Dates: start: 20171103, end: 20171208
  2. CLEXANE [Suspect]
     Active Substance: ENOXAPARIN SODIUM
     Route: 065
     Dates: start: 20171101, end: 20171212
  3. METAMIZOL [Suspect]
     Active Substance: METAMIZOLE SODIUM
     Route: 065
     Dates: start: 20171101, end: 20171208

REACTIONS (1)
  - Drug reaction with eosinophilia and systemic symptoms [Recovered/Resolved]

NARRATIVE: CASE EVENT DATE: 20171204
